FAERS Safety Report 5747635-1 (Version None)
Quarter: 2008Q2

REPORT INFORMATION
  Report Type: 
  Country: None (occurrence: None)
  Receive Date: 20080523
  Receipt Date: 20080516
  Transmission Date: 20081010
  Serious: Yes (Other)
  Sender: FDA-Public Use
  Company Number: GB-AVENTIS-200814590GDDC

PATIENT
  Age: 7 Year
  Sex: Female

DRUGS (1)
  1. DESMOTABS [Suspect]
     Route: 060
     Dates: start: 20080402, end: 20080408

REACTIONS (1)
  - ABNORMAL BEHAVIOUR [None]
